FAERS Safety Report 7387237-7 (Version None)
Quarter: 2011Q1

REPORT INFORMATION
  Report Type: 
  Country: None (occurrence: None)
  Receive Date: 20110331
  Receipt Date: 20110328
  Transmission Date: 20110831
  Serious: No
  Sender: FDA-Public Use
  Company Number: IE-MEDIMMUNE-MEDI-0012651

PATIENT
  Weight: 5.1 kg

DRUGS (4)
  1. RANITIDINE [Concomitant]
     Dates: start: 20100613
  2. CHLORTHIAZIDE TAB [Concomitant]
     Dates: start: 20100613
  3. SYNAGIS [Suspect]
     Route: 030
     Dates: start: 20101001, end: 20101001
  4. SYNAGIS [Suspect]
     Route: 030
     Dates: start: 20110301, end: 20110301

REACTIONS (1)
  - RESPIRATORY SYNCYTIAL VIRUS TEST POSITIVE [None]
